FAERS Safety Report 17240512 (Version 1)
Quarter: 2020Q1

REPORT INFORMATION
  Report Type: Spontaneous
  Country: US (occurrence: US)
  Receive Date: 20200107
  Receipt Date: 20200107
  Transmission Date: 20200409
  Serious: Yes (Life-Threatening, Hospitalization, Other)
  Sender: FDA-Public Use
  Company Number: US-SCIEGEN PHARMACEUTICALS INC-2019SCILIT00396

PATIENT
  Age: 60 Year
  Sex: Female

DRUGS (10)
  1. LOVASTATIN. [Suspect]
     Active Substance: LOVASTATIN
  2. SALINE BOLUSES [Interacting]
     Active Substance: SODIUM CHLORIDE
  3. ATROPINE. [Interacting]
     Active Substance: ATROPINE
  4. INSULIN GLARGINE [Concomitant]
     Active Substance: INSULIN GLARGINE
  5. METFORMIN HYDROCHLORIDETABLETS [Suspect]
     Active Substance: METFORMIN HYDROCHLORIDE
  6. AMLODIPINE [Concomitant]
     Active Substance: AMLODIPINE BESYLATE
  7. ACETAZOLAMIDE. [Concomitant]
     Active Substance: ACETAZOLAMIDE
  8. BROAD SPECTRUM ANTIBIOTICS [Interacting]
     Active Substance: UNSPECIFIED INGREDIENT
  9. VASOPRESSORS [Interacting]
     Active Substance: UNSPECIFIED INGREDIENT
  10. LISINOPRIL. [Concomitant]
     Active Substance: LISINOPRIL

REACTIONS (11)
  - Oedematous pancreatitis [Recovered/Resolved]
  - Retroperitoneal oedema [Recovered/Resolved]
  - Gastroenteritis [Recovered/Resolved]
  - Lactic acidosis [Recovered/Resolved]
  - Intestinal angioedema [Recovered/Resolved]
  - Toxicity to various agents [Recovered/Resolved]
  - Confusional state [Recovered/Resolved]
  - Cardio-respiratory arrest [Recovered/Resolved]
  - Atrial fibrillation [Recovered/Resolved]
  - Gallbladder oedema [Recovered/Resolved]
  - Renal impairment [Recovered/Resolved]
